FAERS Safety Report 23922226 (Version 1)
Quarter: 2024Q2

REPORT INFORMATION
  Report Type: Report from Study
  Country: CO (occurrence: CO)
  Receive Date: 20240531
  Receipt Date: 20240531
  Transmission Date: 20240715
  Serious: Yes (Hospitalization, Other)
  Sender: FDA-Public Use
  Company Number: CO-NOVOPROD-1226839

PATIENT
  Age: 57 Year
  Sex: Female
  Weight: 69 kg

DRUGS (2)
  1. PANTHENOL [Concomitant]
     Active Substance: PANTHENOL
     Indication: Osteoarthritis
     Dosage: 2 TABLETS DAILY
     Route: 048
     Dates: start: 201812
  2. SAXENDA [Suspect]
     Active Substance: LIRAGLUTIDE
     Indication: Obesity
     Dosage: 3 MG, QD
     Route: 058
     Dates: start: 202303, end: 202401

REACTIONS (3)
  - Cholelithiasis [Recovered/Resolved]
  - Cholecystitis infective [Recovered/Resolved]
  - Gastroenteritis [Recovered/Resolved]

NARRATIVE: CASE EVENT DATE: 20240121
